FAERS Safety Report 18522264 (Version 4)
Quarter: 2021Q2

REPORT INFORMATION
  Report Type: Other
  Country: US (occurrence: US)
  Receive Date: 20201119
  Receipt Date: 20210614
  Transmission Date: 20210717
  Serious: Yes (Hospitalization, Other)
  Sender: FDA-Public Use
  Company Number: US-ROCHE-2715636

PATIENT
  Age: 35 Year
  Sex: Male
  Weight: 86.26 kg

DRUGS (3)
  1. OCREVUS [Suspect]
     Active Substance: OCRELIZUMAB
     Indication: MULTIPLE SCLEROSIS
     Dosage: VIAL 600 MG 1 2 MONTHS?INFUSE 300 MG DAY 1 AND THEN 300 MG DAY 15 ONGOING: YES
     Route: 042
     Dates: start: 20171124
  2. KEPPRA [Concomitant]
     Active Substance: LEVETIRACETAM
     Indication: SEIZURE
     Dosage: DOSE UNKNOWN
     Route: 048
  3. POTASSIUM [Concomitant]
     Active Substance: POTASSIUM
     Route: 048

REACTIONS (4)
  - Multiple sclerosis [Unknown]
  - COVID-19 [Unknown]
  - Anti-JC virus antibody index [Unknown]
  - Multiple sclerosis [Unknown]

NARRATIVE: CASE EVENT DATE: 202005
